FAERS Safety Report 4296077-7 (Version None)
Quarter: 2004Q1

REPORT INFORMATION
  Report Type: 
  Country: None (occurrence: None)
  Receive Date: 20040212
  Receipt Date: 20040127
  Transmission Date: 20041129
  Serious: Yes (Death, Hospitalization)
  Sender: FDA-Public Use
  Company Number: 2004-BP-00285BP

PATIENT
  Age: 7 Month
  Sex: Male

DRUGS (4)
  1. VIRAMUNE [Suspect]
     Indication: ANTIVIRAL PROPHYLAXIS
     Dosage: 0.8 ML (NR, ONCE)
     Route: 048
     Dates: start: 20030526, end: 20030526
  2. CRYSTALLINE PENICILLIN [Concomitant]
  3. CHLORAMPHENICOL [Concomitant]
  4. CO-TRIMOXAZOLE (BACTRIM) [Concomitant]

REACTIONS (3)
  - MATERNAL DRUGS AFFECTING FOETUS [None]
  - PNEUMONIA [None]
  - RESPIRATORY DISTRESS [None]
